FAERS Safety Report 8250343-9 (Version None)
Quarter: 2012Q1

REPORT INFORMATION
  Report Type: 
  Country: None (occurrence: None)
  Receive Date: 20120319
  Receipt Date: 20100929
  Transmission Date: 20120608
  Serious: Yes (Other)
  Sender: FDA-Public Use
  Company Number: PHHY2010US35721

PATIENT
  Age: 69 Year
  Sex: Male
  Weight: 100 kg

DRUGS (4)
  1. TOHMOL (DIPYRIDAMOLOE) [Concomitant]
  2. AMLODIPINE [Concomitant]
  3. TEKTURNA HCT [Suspect]
     Indication: HYPERTENSION
     Dosage: 300 /12.5 MG, QD, ORAL
     Route: 048
     Dates: start: 20100501, end: 20100602
  4. LIPITOR [Concomitant]

REACTIONS (1)
  - HYPERKALAEMIA [None]
